FAERS Safety Report 18626815 (Version 3)
Quarter: 2021Q1

REPORT INFORMATION
  Report Type: Report from Study
  Country: BR (occurrence: BR)
  Receive Date: 20201217
  Receipt Date: 20210322
  Transmission Date: 20210419
  Serious: Yes (Life-Threatening, Other)
  Sender: FDA-Public Use
  Company Number: NVSC2020BR316852

PATIENT
  Age: 62 Year
  Sex: Male

DRUGS (3)
  1. TASIGNA [Suspect]
     Active Substance: NILOTINIB
     Indication: CHRONIC MYELOID LEUKAEMIA
     Dosage: 1200 MG, QD (4 TABLETS/300 MG)
     Route: 065
     Dates: start: 20201030
  2. TASIGNA [Suspect]
     Active Substance: NILOTINIB
     Dosage: 200 MG, BID
     Route: 065
  3. TASIGNA [Suspect]
     Active Substance: NILOTINIB
     Dosage: 400 MG, BID (DAY 4)
     Route: 065

REACTIONS (23)
  - Tooth loss [Not Recovered/Not Resolved]
  - Abdominal distension [Recovered/Resolved]
  - Drug intolerance [Unknown]
  - Platelet count decreased [Not Recovered/Not Resolved]
  - Pain [Recovered/Resolved]
  - Sleep disorder [Not Recovered/Not Resolved]
  - Platelet count decreased [Unknown]
  - Contraindication to medical treatment [Not Recovered/Not Resolved]
  - Oropharyngeal discomfort [Not Recovered/Not Resolved]
  - Abdominal distension [Unknown]
  - White blood cell count decreased [Not Recovered/Not Resolved]
  - Fear of death [Not Recovered/Not Resolved]
  - Drug level decreased [Not Recovered/Not Resolved]
  - Affective disorder [Not Recovered/Not Resolved]
  - Emotional distress [Recovered/Resolved]
  - Gingival swelling [Not Recovered/Not Resolved]
  - Nausea [Unknown]
  - Panic disorder [Not Recovered/Not Resolved]
  - Nervousness [Not Recovered/Not Resolved]
  - Platelet count decreased [Unknown]
  - Haemorrhage [Not Recovered/Not Resolved]
  - Malaise [Not Recovered/Not Resolved]
  - Gingival pain [Not Recovered/Not Resolved]

NARRATIVE: CASE EVENT DATE: 20201122
